FAERS Safety Report 10037938 (Version 2)
Quarter: 2014Q4

REPORT INFORMATION
  Report Type: Spontaneous
  Country: US (occurrence: US)
  Receive Date: 20140326
  Receipt Date: 20141007
  Transmission Date: 20150528
  Serious: Yes (Hospitalization, Other)
  Sender: FDA-Public Use
  Company Number: US-BAYER-2014-044964

PATIENT
  Age: 30 Year
  Sex: Female

DRUGS (1)
  1. MIRENA [Suspect]
     Active Substance: LEVONORGESTREL
     Indication: CONTRACEPTION
     Dosage: 20 MCG/24HR, CONT
     Route: 015

REACTIONS (12)
  - Neoplasm [None]
  - Migraine [None]
  - Feeling abnormal [None]
  - Pain [None]
  - Arthralgia [None]
  - Injury [None]
  - Mobility decreased [None]
  - Device dislocation [None]
  - Cyst [None]
  - Malaise [None]
  - Anhedonia [None]
  - Abdominal distension [None]

NARRATIVE: CASE EVENT DATE: 2011
